FAERS Safety Report 6915817-9 (Version None)
Quarter: 2010Q3

REPORT INFORMATION
  Report Type: 
  Country: None (occurrence: None)
  Receive Date: 20100810
  Receipt Date: 20100505
  Transmission Date: 20110219
  Serious: No
  Sender: FDA-Public Use
  Company Number: A0858400A

PATIENT
  Age: 16 Year
  Sex: Male

DRUGS (3)
  1. PAXIL [Suspect]
     Indication: AUTISM
     Dosage: 1TAB UNKNOWN
     Route: 048
  2. PAXIL [Suspect]
     Dosage: 2TSP TWICE PER DAY
     Route: 048
  3. UNKNOWN MEDICATION [Concomitant]

REACTIONS (3)
  - DRUG ADMINISTRATION ERROR [None]
  - DRUG INEFFECTIVE [None]
  - PSYCHOMOTOR HYPERACTIVITY [None]
